FAERS Safety Report 8758561 (Version 1)
Quarter: 2012Q4

REPORT INFORMATION
  Report Type: 
  Country: US (occurrence: US)
  Receive Date: 20120829
  Receipt Date: 20120829
  Transmission Date: 20130627
  Serious: No
  Sender: FDA-Public Use
  Company Number: US-GLAXOSMITHKLINE-A0964036A

PATIENT
  Age: 61 Year
  Sex: Male

DRUGS (3)
  1. ACYCLOVIR [Suspect]
     Indication: ORAL HERPES
     Dosage: 400MG Unknown
     Route: 048
  2. PREDNISONE [Suspect]
     Indication: PRODUCT USED FOR UNKNOWN INDICATION
     Dosage: 5MG Unknown
     Dates: end: 201112
  3. BLOOD PRESSURE MEDICATION [Concomitant]

REACTIONS (1)
  - Renal injury [Not Recovered/Not Resolved]
